FAERS Safety Report 8311883-7 (Version None)
Quarter: 2012Q2

REPORT INFORMATION
  Report Type: 
  Country: None (occurrence: None)
  Receive Date: 20120425
  Receipt Date: 20120416
  Transmission Date: 20120825
  Serious: Yes (Hospitalization)
  Sender: FDA-Public Use
  Company Number: DE-ACTELION-A-US2012-64420

PATIENT

DRUGS (2)
  1. VENTAVIS [Suspect]
     Indication: PULMONARY ARTERIAL HYPERTENSION
     Dosage: 2.5 ?G, Q4HR
     Route: 055
     Dates: start: 20120329
  2. REVATIO [Concomitant]

REACTIONS (3)
  - OEDEMA [None]
  - INFECTION [None]
  - DYSPNOEA [None]
